FAERS Safety Report 22254052 (Version 1)
Quarter: 2023Q2

REPORT INFORMATION
  Report Type: Spontaneous
  Country: US (occurrence: None)
  Receive Date: 20230425
  Receipt Date: 20230425
  Transmission Date: 20230722
  Serious: Yes (Other)
  Sender: FDA-Public Use
  Company Number: None

PATIENT
  Age: 62 Year
  Sex: Male
  Weight: 112.5 kg

DRUGS (2)
  1. ADVANCED EYE RELIEF EYE WASH [Suspect]
     Active Substance: WATER
     Dosage: FREQUENCY : AS NEEDED;?
     Route: 047
     Dates: start: 20230412, end: 20230412
  2. Lisinopril 20 mg - 1 x a day [Concomitant]

REACTIONS (4)
  - Eye pain [None]
  - Eye irritation [None]
  - Eye infection [None]
  - Conjunctivitis [None]

NARRATIVE: CASE EVENT DATE: 20230415
